FAERS Safety Report 7274922-0 (Version None)
Quarter: 2011Q1

REPORT INFORMATION
  Report Type: 
  Country: None (occurrence: None)
  Receive Date: 20110202
  Receipt Date: 20110202
  Transmission Date: 20110831
  Serious: Yes (Hospitalization)
  Sender: FDA-Public Use
  Company Number: None

PATIENT
  Age: 69 Year
  Sex: Female
  Weight: 145 kg

DRUGS (2)
  1. CARBOPLATIN [Suspect]
     Indication: OESOPHAGEAL SQUAMOUS CELL CARCINOMA STAGE II
     Dosage: 56.6 MG @ RATE OF 249 CC/HR ONCE WEEKLY IV
     Route: 042
     Dates: start: 20101130
  2. CARBOPLATIN [Suspect]
     Indication: OESOPHAGEAL SQUAMOUS CELL CARCINOMA STAGE II
     Dosage: 56.6 MG @ RATE OF 249 CC/HR ONCE WEEKLY IV
     Route: 042
     Dates: start: 20101207

REACTIONS (3)
  - INFUSION RELATED REACTION [None]
  - NECK PAIN [None]
  - CHEST PAIN [None]
